FAERS Safety Report 18394357 (Version 2)
Quarter: 2020Q4

REPORT INFORMATION
  Report Type: Spontaneous
  Country: US (occurrence: US)
  Receive Date: 20201016
  Receipt Date: 20201207
  Transmission Date: 20210114
  Serious: No
  Sender: FDA-Public Use
  Company Number: US-INCYTE CORPORATION-2020IN009486

PATIENT

DRUGS (3)
  1. ARANESP [Concomitant]
     Active Substance: DARBEPOETIN ALFA
     Indication: PRODUCT USED FOR UNKNOWN INDICATION
     Dosage: UNK
     Route: 065
     Dates: start: 20200810
  2. JAKAFI [Suspect]
     Active Substance: RUXOLITINIB
     Indication: MONOCLONAL GAMMOPATHY
  3. JAKAFI [Suspect]
     Active Substance: RUXOLITINIB
     Indication: ESSENTIAL THROMBOCYTHAEMIA
     Dosage: 15 MILLIGRAM, QD
     Route: 048
     Dates: start: 20190710

REACTIONS (5)
  - Musculoskeletal stiffness [Unknown]
  - Rib fracture [Unknown]
  - Off label use [Unknown]
  - Fall [Unknown]
  - Back disorder [Unknown]

NARRATIVE: CASE EVENT DATE: 20190710
